FAERS Safety Report 8208229-1 (Version None)
Quarter: 2012Q1

REPORT INFORMATION
  Report Type: 
  Country: None (occurrence: None)
  Receive Date: 20120314
  Receipt Date: 20120309
  Transmission Date: 20120608
  Serious: Yes (Other)
  Sender: FDA-Public Use
  Company Number: PHHY2012GR021447

PATIENT
  Sex: Male
  Weight: 86 kg

DRUGS (2)
  1. TARCEVA [Concomitant]
     Indication: LUNG NEOPLASM MALIGNANT
     Dosage: 4 MG, QD
     Dates: start: 20110314
  2. ZOMETA [Suspect]
     Dosage: 4 MG, EVERY 21 DAYS
     Route: 042
     Dates: start: 20100104, end: 20110705

REACTIONS (1)
  - OSTEONECROSIS OF JAW [None]
